FAERS Safety Report 8791624 (Version 2)
Quarter: 2012Q4

REPORT INFORMATION
  Report Type: 
  Country: US (occurrence: US)
  Receive Date: 20120918
  Receipt Date: 20120926
  Transmission Date: 20130627
  Serious: No
  Sender: FDA-Public Use
  Company Number: US-009507513-1208USA008654

PATIENT
  Age: 18 Year
  Sex: Female
  Weight: 87.75 kg

DRUGS (1)
  1. IMPLANON [Suspect]
     Indication: CONTRACEPTION
     Dosage: UNK
     Dates: start: 20100421

REACTIONS (3)
  - Unintended pregnancy [Unknown]
  - Device difficult to use [Unknown]
  - Medical device complication [Unknown]
